FAERS Safety Report 20169640 (Version 1)
Quarter: 2021Q4

REPORT INFORMATION
  Report Type: Spontaneous
  Country: US (occurrence: US)
  Receive Date: 20211210
  Receipt Date: 20211210
  Transmission Date: 20220303
  Serious: No
  Sender: FDA-Public Use
  Company Number: US-APOTEX-2021AP004813

PATIENT
  Age: 16 Year
  Sex: Male

DRUGS (4)
  1. MEMANTINE [Suspect]
     Active Substance: MEMANTINE
     Indication: Product used for unknown indication
     Dosage: 2 MILLIGRAM, QD
     Route: 065
  2. MEMANTINE [Suspect]
     Active Substance: MEMANTINE
     Dosage: 4 MILLIGRAM, QD
     Route: 065
  3. MEMANTINE [Suspect]
     Active Substance: MEMANTINE
     Dosage: 8 MILLIGRAM, QD
     Route: 065
  4. MEMANTINE [Suspect]
     Active Substance: MEMANTINE
     Dosage: 10 MILLIGRAM
     Route: 065

REACTIONS (3)
  - Nausea [Unknown]
  - Off label use [Unknown]
  - Vomiting [Unknown]
